FAERS Safety Report 15715693 (Version 1)
Quarter: 2018Q4

REPORT INFORMATION
  Report Type: Report from Study
  Country: JP (occurrence: JP)
  Receive Date: 20181212
  Receipt Date: 20181212
  Transmission Date: 20190205
  Serious: Yes (Death, Other)
  Sender: FDA-Public Use
  Company Number: JP-AMGEN-JPNNI2017107628

PATIENT
  Age: 90 Year
  Sex: Male
  Weight: 44.5 kg

DRUGS (5)
  1. CARFILZOMIB [Suspect]
     Active Substance: CARFILZOMIB
     Dosage: 28 MG/M2, QD
     Route: 041
     Dates: start: 20170627, end: 20170628
  2. DEXAMETHASONE. [Concomitant]
     Active Substance: DEXAMETHASONE
     Indication: PLASMA CELL MYELOMA
     Dosage: 12 MG, QD
     Route: 065
     Dates: start: 20170620, end: 20170719
  3. CARFILZOMIB [Suspect]
     Active Substance: CARFILZOMIB
     Indication: PLASMA CELL MYELOMA
     Dosage: 14 MG/M2, QD
     Route: 041
     Dates: start: 20170620, end: 20170621
  4. CARFILZOMIB [Suspect]
     Active Substance: CARFILZOMIB
     Dosage: 14 MG/M2, QD
     Route: 041
     Dates: start: 20170712, end: 20170719
  5. ASTRIC [Concomitant]
     Active Substance: ACYCLOVIR
     Indication: ANTIVIRAL PROPHYLAXIS
     Dosage: 200 MG, QD
     Route: 048
     Dates: end: 20170904

REACTIONS (6)
  - Lymphoma [Fatal]
  - Neutrophil count decreased [Recovered/Resolved]
  - Neutrophil count decreased [Recovered/Resolved]
  - Neutrophil count decreased [Recovered/Resolved]
  - Neutrophil count decreased [Recovered/Resolved]
  - Platelet count decreased [Recovered/Resolved]

NARRATIVE: CASE EVENT DATE: 2017
